FAERS Safety Report 8181908-0 (Version None)
Quarter: 2012Q1

REPORT INFORMATION
  Report Type: 
  Country: None (occurrence: None)
  Receive Date: 20120302
  Receipt Date: 20120216
  Transmission Date: 20120608
  Serious: Yes (Hospitalization)
  Sender: FDA-Public Use
  Company Number: BE-ABBOTT-11P-013-0870443-00

PATIENT
  Sex: Female

DRUGS (6)
  1. OMEPRAZOLE [Concomitant]
     Indication: GASTRIC DISORDER
  2. AMLODIPINE [Concomitant]
     Indication: HYPERTENSION
     Dates: start: 20080101
  3. HUMIRA [Suspect]
     Indication: PSORIATIC ARTHROPATHY
     Dates: start: 20091123
  4. ACETAMINOPHEN [Concomitant]
     Indication: ARTHRITIS
     Dosage: IF NECESSARY
  5. MEDROL [Concomitant]
     Indication: PSORIATIC ARTHROPATHY
     Dates: start: 20100101, end: 20110617
  6. OMEPRAZOLE [Concomitant]
     Indication: PROPHYLAXIS

REACTIONS (6)
  - INFLAMMATORY MARKER INCREASED [None]
  - IRON DEFICIENCY [None]
  - MICROCYTIC ANAEMIA [None]
  - RED BLOOD CELL SEDIMENTATION RATE INCREASED [None]
  - HEPATIC FUNCTION ABNORMAL [None]
  - INFLAMMATION [None]
